FAERS Safety Report 8827164 (Version 1)
Quarter: 2012Q4

REPORT INFORMATION
  Report Type: 
  Country: FR (occurrence: FR)
  Receive Date: 20121006
  Receipt Date: 20121006
  Transmission Date: 20130627
  Serious: Yes (Other)
  Sender: FDA-Public Use
  Company Number: FR-UCBSA-068099

PATIENT
  Age: 69 Year
  Sex: Male

DRUGS (2)
  1. VIMPAT [Suspect]
     Indication: EPILEPSY
     Route: 048
  2. ZONEGRAN [Concomitant]
     Indication: EPILEPSY
     Route: 048

REACTIONS (1)
  - Encephalopathy [Not Recovered/Not Resolved]
